FAERS Safety Report 19386165 (Version 2)
Quarter: 2022Q2

REPORT INFORMATION
  Report Type: Report from Study
  Country: MX (occurrence: MX)
  Receive Date: 20210607
  Receipt Date: 20220624
  Transmission Date: 20220720
  Serious: Yes (Hospitalization, Other)
  Sender: FDA-Public Use
  Company Number: MX-BAUSCH-BL-2021-019848

PATIENT
  Age: 36 Year
  Sex: Male

DRUGS (15)
  1. HYDROCORTISONE [Suspect]
     Active Substance: HYDROCORTISONE
     Indication: COVID-19 pneumonia
     Route: 065
     Dates: start: 2020
  2. HYDROCORTISONE [Suspect]
     Active Substance: HYDROCORTISONE
     Indication: Product use in unapproved indication
  3. RIBAVIRIN [Suspect]
     Active Substance: RIBAVIRIN
     Indication: COVID-19
     Route: 065
     Dates: start: 2020
  4. RIBAVIRIN [Suspect]
     Active Substance: RIBAVIRIN
     Indication: Product use in unapproved indication
  5. CEFTAZIDIME [Suspect]
     Active Substance: CEFTAZIDIME
     Indication: Antibiotic therapy
     Route: 065
     Dates: start: 2020
  6. CEFTRIAXONE [Suspect]
     Active Substance: CEFTRIAXONE
     Indication: Antibiotic therapy
     Route: 065
     Dates: start: 2020
  7. PREDNISONE [Suspect]
     Active Substance: PREDNISONE
     Indication: COVID-19 pneumonia
     Route: 065
     Dates: start: 2020
  8. METHYLPREDNISOLONE [Suspect]
     Active Substance: METHYLPREDNISOLONE
     Indication: COVID-19 pneumonia
     Route: 065
     Dates: start: 2020
  9. VALGANCICLOVIR [Suspect]
     Active Substance: VALGANCICLOVIR
     Indication: Antibiotic therapy
     Route: 065
     Dates: start: 2020
  10. MEROPENEM [Suspect]
     Active Substance: MEROPENEM
     Indication: Antibiotic therapy
     Route: 065
     Dates: start: 2020
  11. LINEZOLID [Suspect]
     Active Substance: LINEZOLID
     Indication: Antibiotic therapy
     Route: 065
     Dates: start: 2020
  12. LOPINAVIR\RITONAVIR [Concomitant]
     Active Substance: LOPINAVIR\RITONAVIR
     Indication: COVID-19
     Dates: start: 2020
  13. BARICITINIB [Concomitant]
     Active Substance: BARICITINIB
     Indication: COVID-19
     Dates: start: 2020
  14. HUMAN PLASMA [Concomitant]
     Active Substance: HUMAN PLASMA
     Indication: COVID-19
     Dates: start: 2020
  15. TOCILIZUMAB [Concomitant]
     Active Substance: TOCILIZUMAB
     Indication: COVID-19
     Dates: start: 2020

REACTIONS (3)
  - Cytomegalovirus infection [Unknown]
  - Candida infection [Unknown]
  - Product use in unapproved indication [Unknown]

NARRATIVE: CASE EVENT DATE: 20200101
